FAERS Safety Report 15895788 (Version 2)
Quarter: 2019Q1

REPORT INFORMATION
  Report Type: Spontaneous
  Country: JP (occurrence: JP)
  Receive Date: 20190131
  Receipt Date: 20190213
  Transmission Date: 20190417
  Serious: Yes (Other)
  Sender: FDA-Public Use
  Company Number: JP-ASTRAZENECA-2019SE16152

PATIENT
  Age: 76 Year
  Sex: Male

DRUGS (2)
  1. WARFARIN K [Suspect]
     Active Substance: WARFARIN POTASSIUM
     Route: 065
  2. TAGRISSO [Suspect]
     Active Substance: OSIMERTINIB
     Indication: NON-SMALL CELL LUNG CANCER
     Route: 048

REACTIONS (3)
  - Pulmonary alveolar haemorrhage [Recovering/Resolving]
  - Infection [Unknown]
  - Interstitial lung disease [Unknown]
